FAERS Safety Report 10792771 (Version 1)
Quarter: 2015Q1

REPORT INFORMATION
  Report Type: Spontaneous
  Country: DK (occurrence: DE)
  Receive Date: 20150213
  Receipt Date: 20150213
  Transmission Date: 20150721
  Serious: Yes (Hospitalization, Congenital Anomaly, Other)
  Sender: FDA-Public Use
  Company Number: DE-FRI-1000074408

PATIENT
  Age: 1 Day
  Sex: Male
  Weight: 3 kg

DRUGS (6)
  1. CITALOPRAM [Suspect]
     Active Substance: CITALOPRAM HYDROBROMIDE
     Indication: SCHIZOAFFECTIVE DISORDER
     Dosage: 20 MG
     Route: 064
     Dates: start: 20140117
  2. CITALOPRAM [Suspect]
     Active Substance: CITALOPRAM HYDROBROMIDE
     Dosage: 10 MG
     Route: 064
     Dates: end: 20141107
  3. QUILONUM RETARD [Suspect]
     Active Substance: LITHIUM CARBONATE
     Indication: SCHIZOAFFECTIVE DISORDER
     Dosage: 1200 - 1800 MG
     Route: 064
     Dates: start: 20140117, end: 20141107
  4. ANTI-D-IMMUNGLOBULIN VOM MENSCHEN [Concomitant]
     Indication: PROPHYLAXIS AGAINST RH ISOIMMUNISATION
     Route: 064
     Dates: start: 20140610, end: 20140610
  5. CLOZAPIN [Suspect]
     Active Substance: CLOZAPINE
     Indication: SCHIZOAFFECTIVE DISORDER
     Dosage: 1 MG
     Route: 064
     Dates: start: 20140117, end: 20141107
  6. FOLSAN [Concomitant]
     Active Substance: FOLIC ACID
     Indication: PROPHYLAXIS OF NEURAL TUBE DEFECT
     Route: 064
     Dates: end: 20141107

REACTIONS (5)
  - Atrial septal defect [Not Recovered/Not Resolved]
  - Small for dates baby [Unknown]
  - Foetal exposure during pregnancy [Not Recovered/Not Resolved]
  - Cyanosis [Unknown]
  - Ventricular septal defect [Not Recovered/Not Resolved]

NARRATIVE: CASE EVENT DATE: 20140117
